FAERS Safety Report 25790852 (Version 1)
Quarter: 2025Q3

REPORT INFORMATION
  Report Type: Spontaneous
  Country: US (occurrence: None)
  Receive Date: 20250911
  Receipt Date: 20250911
  Transmission Date: 20251021
  Serious: No
  Sender: FDA-CTU
  Company Number: None

PATIENT
  Age: 67 Year
  Sex: Female
  Weight: 78.6 kg

DRUGS (1)
  1. RITUXIMAB [Suspect]
     Active Substance: RITUXIMAB

REACTIONS (11)
  - Hypersensitivity [None]
  - Ocular hyperaemia [None]
  - Eye pruritus [None]
  - Eye pain [None]
  - Eye swelling [None]
  - Vision blurred [None]
  - Foreign body sensation in eyes [None]
  - Photophobia [None]
  - Halo vision [None]
  - Visual impairment [None]
  - Lacrimation increased [None]

NARRATIVE: CASE EVENT DATE: 20250823
